FAERS Safety Report 8696159 (Version 2)
Quarter: 2013Q4

REPORT INFORMATION
  Report Type: Spontaneous
  Country: US (occurrence: US)
  Receive Date: 20120801
  Receipt Date: 20131031
  Transmission Date: 20140711
  Serious: No
  Sender: FDA-Public Use
  Company Number: US-009507513-2012SP026361

PATIENT
  Sex: Female
  Weight: 60.86 kg

DRUGS (2)
  1. IMPLANON [Suspect]
     Indication: CONTRACEPTION
     Dosage: 1 DF, UNK
     Dates: start: 20120130
  2. ACETAMINOPHEN (+) DIPHENHYDRAMINE HYDROCHLORIDE [Concomitant]

REACTIONS (1)
  - Unintended pregnancy [Not Recovered/Not Resolved]
